FAERS Safety Report 5476361-1 (Version None)
Quarter: 2007Q4

REPORT INFORMATION
  Report Type: 
  Country: None (occurrence: None)
  Receive Date: 20071003
  Receipt Date: 20070921
  Transmission Date: 20080405
  Serious: Yes (Hospitalization, Other)
  Sender: FDA-Public Use
  Company Number: US-PFIZER INC-2007077705

PATIENT
  Sex: Male
  Weight: 81.8 kg

DRUGS (15)
  1. VIAGRA [Suspect]
     Indication: ERECTILE DYSFUNCTION
     Dates: start: 20030101, end: 20060101
  2. ANTI-DIABETICS [Concomitant]
  3. CARDIOVASCULAR SYSTEM DRUGS [Concomitant]
  4. ALL OTHER THERAPEUTIC PRODUCTS [Concomitant]
  5. ZINC [Concomitant]
  6. VITAMIN B COMPLEX CAP [Concomitant]
  7. DHEA [Concomitant]
  8. IODINE [Concomitant]
  9. CHROMIUM [Concomitant]
  10. AMARYL [Concomitant]
  11. VASOTEC [Concomitant]
  12. SPIRONOLACTONE [Concomitant]
  13. EFFEXOR XR [Concomitant]
  14. PREVACID [Concomitant]
  15. BENADRYL [Concomitant]

REACTIONS (9)
  - ANDROPAUSE [None]
  - BLOOD TESTOSTERONE DECREASED [None]
  - CRYING [None]
  - DIVERTICULITIS [None]
  - DRUG INEFFECTIVE [None]
  - FATIGUE [None]
  - FEELING COLD [None]
  - HOT FLUSH [None]
  - SOMNOLENCE [None]
